FAERS Safety Report 9717068 (Version 2)
Quarter: 2013Q4

REPORT INFORMATION
  Report Type: Spontaneous
  Country: US (occurrence: US)
  Receive Date: 20131127
  Receipt Date: 20131127
  Transmission Date: 20140711
  Serious: No
  Sender: FDA-Public Use
  Company Number: US-GILEAD-2009-0020795

PATIENT
  Age: 66 Year
  Sex: Female
  Weight: 90.26 kg

DRUGS (12)
  1. LETAIRIS [Suspect]
     Indication: PULMONARY ARTERIAL HYPERTENSION
     Route: 048
     Dates: start: 200807
  2. PLAVIX [Concomitant]
  3. VYTORIN [Concomitant]
  4. HYZAAR [Concomitant]
  5. AVANDIA [Concomitant]
  6. LASIX [Concomitant]
  7. AMARYL [Concomitant]
  8. K-DUR [Concomitant]
  9. LANTUS [Concomitant]
  10. TOPROL XL [Concomitant]
  11. NEXIUM [Concomitant]
  12. LISINOPRIL [Concomitant]

REACTIONS (2)
  - Nausea [Unknown]
  - Retching [Unknown]
